FAERS Safety Report 22216346 (Version 1)
Quarter: 2023Q2

REPORT INFORMATION
  Report Type: Report from Study
  Country: US (occurrence: None)
  Receive Date: 20230417
  Receipt Date: 20230417
  Transmission Date: 20230721
  Serious: Yes (Hospitalization)
  Sender: FDA-Public Use
  Company Number: US-ROCHE-1120088

PATIENT
  Age: 59 Year
  Sex: Female
  Weight: 87.6 kg

DRUGS (2)
  1. BEVACIZUMAB [Suspect]
     Active Substance: BEVACIZUMAB
     Indication: Invasive breast carcinoma
     Dosage: IVPB OVER 30-90 MIN ON DAY 1, LAST DOSE PRIOR TO SAE WAS ON 23/JUL/2012
     Route: 065
     Dates: start: 20110505
  2. LETROZOLE [Suspect]
     Active Substance: LETROZOLE
     Indication: Invasive breast carcinoma
     Dosage: LAST DOSE PRIOR TO SAE WAS ON 12/AUG/2012
     Route: 048
     Dates: start: 20110505

REACTIONS (4)
  - Hypertension [Recovered/Resolved]
  - Non-cardiac chest pain [Recovered/Resolved with Sequelae]
  - Angina pectoris [Recovered/Resolved]
  - Acute coronary syndrome [Recovered/Resolved]

NARRATIVE: CASE EVENT DATE: 20120808
